FAERS Safety Report 7930466-1 (Version None)
Quarter: 2011Q4

REPORT INFORMATION
  Report Type: 
  Country: None (occurrence: None)
  Receive Date: 20111121
  Receipt Date: 20111115
  Transmission Date: 20120403
  Serious: Yes (Death, Hospitalization, Other)
  Sender: FDA-Public Use
  Company Number: US-CELGENEUS-163-21880-11103130

PATIENT
  Sex: Female

DRUGS (13)
  1. CYMBALTA [Concomitant]
     Route: 065
  2. PIPERACILLIN [Concomitant]
     Route: 065
     Dates: start: 20111001
  3. VANCOMYCIN [Concomitant]
     Route: 065
     Dates: start: 20111001
  4. ASPIRIN [Concomitant]
     Route: 065
  5. CALCIUM + VITAMIN D [Concomitant]
     Route: 065
  6. MAGNESIUM [Concomitant]
     Route: 065
  7. MULTI-VITAMINS [Concomitant]
     Route: 065
  8. SYNTHROID [Concomitant]
     Route: 065
  9. MORPHINE [Concomitant]
     Route: 065
  10. ELOTUZUMAB [Suspect]
     Indication: MULTIPLE MYELOMA
     Route: 041
     Dates: start: 20110927
  11. DEXAMETHASONE [Suspect]
     Indication: MULTIPLE MYELOMA
     Dosage: 20 MILLIGRAM
     Route: 041
     Dates: start: 20110927
  12. TAZOBACTAM [Concomitant]
     Route: 065
     Dates: start: 20111001
  13. REVLIMID [Suspect]
     Indication: MULTIPLE MYELOMA
     Dosage: 25 MILLIGRAM
     Route: 048
     Dates: start: 20111003

REACTIONS (4)
  - CELLULITIS [None]
  - PNEUMONIA [None]
  - MULTI-ORGAN FAILURE [None]
  - SEPSIS [None]
